FAERS Safety Report 4904826-7 (Version None)
Quarter: 2006Q1

REPORT INFORMATION
  Report Type: 
  Country: None (occurrence: None)
  Receive Date: 20060208
  Receipt Date: 20051010
  Transmission Date: 20060701
  Serious: No
  Sender: FDA-Public Use
  Company Number: US-GLAXOSMITHKLINE-A0577665A

PATIENT
  Age: 36 Year
  Sex: Female

DRUGS (6)
  1. PAXIL [Suspect]
     Indication: DEPRESSION
     Dosage: 40MG PER DAY
     Route: 048
     Dates: start: 19980101, end: 20051010
  2. ORTHO-NOVUM 7/7/7-21 [Concomitant]
  3. TRIAMTERENE [Concomitant]
  4. CHOLESTYRAMINE [Concomitant]
  5. ALLEGRA [Concomitant]
  6. MULTI-VITAMIN [Concomitant]

REACTIONS (6)
  - COUGH [None]
  - PHARYNGOLARYNGEAL PAIN [None]
  - PYREXIA [None]
  - RESPIRATORY TRACT CONGESTION [None]
  - RHINORRHOEA [None]
  - WHEEZING [None]
